FAERS Safety Report 13064004 (Version 1)
Quarter: 2016Q4

REPORT INFORMATION
  Report Type: Spontaneous
  Country: US (occurrence: US)
  Receive Date: 20161227
  Receipt Date: 20161227
  Transmission Date: 20170207
  Serious: No
  Sender: FDA-Public Use
  Company Number: US-PFIZER INC-2016597566

PATIENT
  Age: 48 Year
  Sex: Female
  Weight: 111 kg

DRUGS (4)
  1. LYRICA [Suspect]
     Active Substance: PREGABALIN
     Dosage: 75 MG, 2X/DAY
     Route: 048
  2. LYRICA [Suspect]
     Active Substance: PREGABALIN
     Indication: NEUROPATHY PERIPHERAL
     Dosage: 25 MG, 3X/DAY
     Route: 048
     Dates: start: 201608
  3. LYRICA [Suspect]
     Active Substance: PREGABALIN
     Dosage: 100 MG, UNK
     Route: 048
  4. LYRICA [Suspect]
     Active Substance: PREGABALIN
     Dosage: 50 MG, UNK
     Route: 048

REACTIONS (5)
  - Somnolence [Unknown]
  - Irritability [Unknown]
  - Drug effect incomplete [Not Recovered/Not Resolved]
  - Upper respiratory tract infection [Not Recovered/Not Resolved]
  - Nasopharyngitis [Not Recovered/Not Resolved]

NARRATIVE: CASE EVENT DATE: 201608
